FAERS Safety Report 8583847-X (Version None)
Quarter: 2012Q3

REPORT INFORMATION
  Report Type: 
  Country: None (occurrence: None)
  Receive Date: 20120810
  Receipt Date: 20120731
  Transmission Date: 20120928
  Serious: Yes (Other)
  Sender: FDA-Public Use
  Company Number: DE-009507513-2012SP033190

PATIENT

DRUGS (7)
  1. OXYCODONE HCL [Concomitant]
     Dosage: UNK
     Dates: start: 20111201
  2. HORMONAL CONTRACEPTIVES (UNSPECIFIED) [Concomitant]
     Route: 048
  3. DOXORUBICIN HYDROCHLORIDE [Suspect]
     Indication: PRODUCT USED FOR UNKNOWN INDICATION
     Dosage: UNK
     Dates: start: 20081002, end: 20090701
  4. DICLOFENAC [Concomitant]
     Dosage: UNK
     Dates: start: 20111201
  5. PEGINTERFERON ALFA-2B [Suspect]
     Indication: CONDITION AGGRAVATED
     Dosage: 1 ?G, QW
     Dates: start: 20110413, end: 20120314
  6. ACETAMINOPHEN [Concomitant]
     Dosage: UNK
     Dates: start: 20111201
  7. CLONIDINE [Concomitant]
     Dosage: UNK
     Dates: start: 20111201

REACTIONS (2)
  - CARDIAC FUNCTION TEST ABNORMAL [None]
  - EJECTION FRACTION DECREASED [None]
